FAERS Safety Report 20699569 (Version 2)
Quarter: 2022Q2

REPORT INFORMATION
  Report Type: Spontaneous
  Country: FR (occurrence: FR)
  Receive Date: 20220412
  Receipt Date: 20220505
  Transmission Date: 20220721
  Serious: No
  Sender: FDA-Public Use
  Company Number: None

PATIENT
  Age: 28 Year
  Sex: Female
  Weight: 39.8 kg

DRUGS (2)
  1. CILASTATIN SODIUM\IMIPENEM [Suspect]
     Active Substance: CILASTATIN SODIUM\IMIPENEM
     Indication: Febrile bone marrow aplasia
     Dosage: 3 GRAM
     Dates: start: 20210606, end: 20210606
  2. AZACTAM [Suspect]
     Active Substance: AZTREONAM
     Indication: Febrile bone marrow aplasia
     Dosage: 1 G POWDER AND SOLUTION FOR PARENTERAL USE; NOT SPECIFIED
     Route: 041
     Dates: start: 20210527, end: 20210605

REACTIONS (1)
  - Toxic skin eruption [Recovered/Resolved]

NARRATIVE: CASE EVENT DATE: 20210606
